FAERS Safety Report 9049024 (Version 1)
Quarter: 2013Q1

REPORT INFORMATION
  Report Type: Spontaneous
  Country: FR (occurrence: None)
  Receive Date: 20130117
  Receipt Date: 20130117
  Transmission Date: 20140127
  Serious: Yes (Hospitalization)
  Sender: FDA-Public Use
  Company Number: DSA_61875_2013

PATIENT
  Age: 34 Year
  Sex: Female
  Weight: 81 kg

DRUGS (10)
  1. ZOVIRAX [Suspect]
     Indication: HERPES ZOSTER
     Dosage: 10 MG/KG 12 HOURS INTRAVENOUS (NOT OTHERWISE SPECIFIED)
     Route: 042
     Dates: start: 20120615, end: 20120622
  2. VALACYCLOVIR [Suspect]
     Indication: HERPES ZOSTER
     Route: 048
     Dates: start: 20120611, end: 2012
  3. BACTRIM [Suspect]
     Indication: OPPORTUNISTIC INFECTION PROPHYLAXIS
     Route: 048
     Dates: start: 20120629, end: 20121031
  4. CELLCEPT [Suspect]
     Indication: GLOMERULONEPHRITIS
     Route: 048
  5. COZAAR [Concomitant]
  6. UVEDOSE [Concomitant]
  7. PARACETAMOL [Concomitant]
  8. PARACETAMOL/CODEINE [Concomitant]
  9. CORTANCYL [Concomitant]
  10. FLAQUENIL /00072603/ [Concomitant]

REACTIONS (13)
  - Drug ineffective [None]
  - Lymphopenia [None]
  - Asthenia [None]
  - Chills [None]
  - Gingival pain [None]
  - Toothache [None]
  - Localised oedema [None]
  - Nausea [None]
  - Vomiting [None]
  - Mucosal inflammation [None]
  - Stomatitis [None]
  - Cellulitis [None]
  - Agranulocytosis [None]
